FAERS Safety Report 14495852 (Version 2)
Quarter: 2018Q1

REPORT INFORMATION
  Report Type: Report from Study
  Country: US (occurrence: US)
  Receive Date: 20180207
  Receipt Date: 20180216
  Transmission Date: 20180509
  Serious: Yes (Death, Other)
  Sender: FDA-Public Use
  Company Number: US-CIPLA LTD.-2018US03001

PATIENT

DRUGS (2)
  1. GEMCITABINE [Suspect]
     Active Substance: GEMCITABINE\GEMCITABINE HYDROCHLORIDE
     Indication: ADENOCARCINOMA PANCREAS
     Dosage: 750 MG/M2, DAY 5 FOR WEEKS 1, 2, 4, AND 5 OF RADIATION THERAPY
     Route: 042
  2. CAPECITABINE. [Suspect]
     Active Substance: CAPECITABINE
     Indication: ADENOCARCINOMA PANCREAS
     Dosage: 75 MG/M2, FOR DAYS 1-5
     Route: 048

REACTIONS (6)
  - Death [Fatal]
  - Pulmonary embolism [Unknown]
  - Cardiac disorder [Unknown]
  - Sepsis [Unknown]
  - White blood cell count decreased [Unknown]
  - Hypotension [Unknown]
